FAERS Safety Report 8921927 (Version 1)
Quarter: 2012Q4

REPORT INFORMATION
  Report Type: Spontaneous
  Country: US (occurrence: None)
  Receive Date: 20121119
  Receipt Date: 20121119
  Transmission Date: 20130627
  Serious: Yes (Death)
  Sender: FDA-Public Use
  Company Number: None

PATIENT
  Age: 71 Year
  Sex: Male
  Weight: 77.5 kg

DRUGS (2)
  1. PRADAXA, 150 MG [Suspect]
     Indication: ATRIAL FIBRILLATION WITH RAPID VENTRICULAR RESPONSE
     Dosage: 1 capsule
     Route: 048
  2. ASPIRIN [Suspect]
     Indication: CORONARY ARTERY DISEASE
     Route: 048

REACTIONS (3)
  - Cerebrovascular accident [None]
  - Haemorrhagic stroke [None]
  - Ischaemic stroke [None]
